FAERS Safety Report 15848302 (Version 3)
Quarter: 2019Q2

REPORT INFORMATION
  Report Type: Spontaneous
  Country: US (occurrence: US)
  Receive Date: 20190121
  Receipt Date: 20190617
  Transmission Date: 20190711
  Serious: No
  Sender: FDA-Public Use
  Company Number: US-PFIZER INC-2019024013

PATIENT
  Age: 55 Year
  Sex: Female
  Weight: 88.44 kg

DRUGS (16)
  1. METHOTREXATE. [Concomitant]
     Active Substance: METHOTREXATE
     Dosage: 2.5MG X 6 ONCE A WEEK
     Dates: start: 201512, end: 20190502
  2. XELJANZ XR [Suspect]
     Active Substance: TOFACITINIB CITRATE
     Indication: RHEUMATOID ARTHRITIS
     Dosage: 11 MG, 1X/DAY
     Route: 048
     Dates: start: 201812
  3. XELJANZ XR [Suspect]
     Active Substance: TOFACITINIB CITRATE
     Dosage: 11 MG, 1X/DAY
     Route: 048
  4. ESOMEPRAZOLE MAGNESIUM. [Concomitant]
     Active Substance: ESOMEPRAZOLE MAGNESIUM
     Dosage: 40 MG
  5. FOLIC ACID. [Concomitant]
     Active Substance: FOLIC ACID
     Dosage: 1 MG, DAILY
     Dates: start: 201512
  6. LEVOTHYROXINE SODIUM. [Concomitant]
     Active Substance: LEVOTHYROXINE SODIUM
     Dosage: 125 UG
  7. PREDNISONE [PREDNISONE ACETATE] [Concomitant]
     Active Substance: PREDNISONE ACETATE
     Dosage: 5 MG
  8. FOLIC ACID. [Concomitant]
     Active Substance: FOLIC ACID
     Dosage: UNK, DAILY
     Dates: start: 201512
  9. PANTOPRAZOLE SODIUM. [Concomitant]
     Active Substance: PANTOPRAZOLE SODIUM
     Dosage: 40 MG
  10. COQ 10 [Concomitant]
     Active Substance: UBIDECARENONE
  11. FISH OIL [Concomitant]
     Active Substance: FISH OIL
  12. GLUCOSAMINE CHONDROITIN [CHONDROITIN SULFATE;GLUCOSAMINE] [Concomitant]
  13. MSM [Concomitant]
     Active Substance: DIMETHYL SULFONE
  14. RANITIDINE HYDROCHLORIDE. [Concomitant]
     Active Substance: RANITIDINE HYDROCHLORIDE
     Dosage: 300 MG
  15. ADVIL [IBUPROFEN] [Concomitant]
     Active Substance: IBUPROFEN
  16. VITAMIN D3 [Concomitant]
     Active Substance: CHOLECALCIFEROL

REACTIONS (5)
  - Pain [Unknown]
  - Drug hypersensitivity [Unknown]
  - Oropharyngeal pain [Not Recovered/Not Resolved]
  - Dysphonia [Not Recovered/Not Resolved]
  - Drug ineffective [Unknown]

NARRATIVE: CASE EVENT DATE: 201812
